FAERS Safety Report 13121692 (Version 3)
Quarter: 2017Q2

REPORT INFORMATION
  Report Type: Spontaneous
  Country: US (occurrence: US)
  Receive Date: 20170117
  Receipt Date: 20170421
  Transmission Date: 20170830
  Serious: Yes (Other)
  Sender: FDA-Public Use
  Company Number: US-PFIZER INC-2017017192

PATIENT
  Age: 58 Year
  Sex: Male
  Weight: 122.4 kg

DRUGS (1)
  1. LYRICA [Suspect]
     Active Substance: PREGABALIN
     Indication: NEUROPATHY PERIPHERAL
     Dosage: 100 MG, 2X/DAY (ONE PILL IN THE MORNING AND ONE IN THE EVENING)
     Route: 048
     Dates: start: 2015

REACTIONS (6)
  - Rotator cuff syndrome [Unknown]
  - Diabetes mellitus [Unknown]
  - Drug dose omission [Not Recovered/Not Resolved]
  - Fall [Unknown]
  - Pain [Not Recovered/Not Resolved]
  - Upper limb fracture [Unknown]

NARRATIVE: CASE EVENT DATE: 201505
